FAERS Safety Report 7633734-6 (Version None)
Quarter: 2011Q3

REPORT INFORMATION
  Report Type: 
  Country: None (occurrence: None)
  Receive Date: 20110725
  Receipt Date: 20110718
  Transmission Date: 20111222
  Serious: Yes (Death, Hospitalization)
  Sender: FDA-Public Use
  Company Number: GB-CELGENEUS-167-50794-11072272

PATIENT

DRUGS (1)
  1. VIDAZA [Suspect]
     Route: 065
     Dates: end: 20110201

REACTIONS (2)
  - ABDOMINAL DISTENSION [None]
  - DEATH [None]
